FAERS Safety Report 7301534-2 (Version None)
Quarter: 2011Q1

REPORT INFORMATION
  Report Type: 
  Country: None (occurrence: None)
  Receive Date: 20110218
  Receipt Date: 20101215
  Transmission Date: 20110831
  Serious: No
  Sender: FDA-Public Use
  Company Number: US-BRISTOL-MYERS SQUIBB COMPANY-15435175

PATIENT
  Age: 7 Month
  Sex: Male

DRUGS (1)
  1. KENALOG-10 [Suspect]
     Indication: HAEMANGIOMA
     Dosage: 1 DF=0.5 CC TO 1 ML

REACTIONS (3)
  - FLUSHING [None]
  - URTICARIA [None]
  - GENERALISED ERYTHEMA [None]
